FAERS Safety Report 6727412-5 (Version None)
Quarter: 2010Q2

REPORT INFORMATION
  Report Type: 
  Country: None (occurrence: None)
  Receive Date: 20100517
  Receipt Date: 20100505
  Transmission Date: 20101027
  Serious: Yes (Other)
  Sender: FDA-Public Use
  Company Number: PHFR2010GB00522

PATIENT
  Age: 53 Year
  Sex: Female

DRUGS (4)
  1. ZOMETA [Suspect]
     Indication: OSTEOPENIA
     Dosage: UNK
     Route: 042
  2. EXEMESTANE [Concomitant]
     Dosage: 25 MG, QD
  3. ILUBE [Concomitant]
     Dosage: UNK
  4. TEMAZEPAM [Concomitant]
     Dosage: 10 MG, QD

REACTIONS (2)
  - MALIGNANT HYPERTENSION [None]
  - VASCULAR INJURY [None]
